FAERS Safety Report 16527830 (Version 1)
Quarter: 2019Q3

REPORT INFORMATION
  Report Type: Spontaneous
  Country: MX (occurrence: MX)
  Receive Date: 20190703
  Receipt Date: 20190703
  Transmission Date: 20191004
  Serious: Yes (Hospitalization, Other)
  Sender: FDA-Public Use
  Company Number: MX-SA-2019SA171929

PATIENT
  Age: 69 Year
  Sex: Male
  Weight: 90 kg

DRUGS (3)
  1. METFORMIN [Concomitant]
     Active Substance: METFORMIN HYDROCHLORIDE
     Indication: TYPE 2 DIABETES MELLITUS
     Dosage: 2 DF, QD
     Route: 048
  2. TOUJEO [Suspect]
     Active Substance: INSULIN GLARGINE
     Indication: TYPE 2 DIABETES MELLITUS
     Dosage: 20- 30 U/DAILY
     Route: 058
     Dates: start: 2017
  3. ZUNUN [Concomitant]
     Indication: EMBOLIC CEREBRAL INFARCTION
     Dosage: 1 DF, QD
     Route: 048

REACTIONS (3)
  - Diabetes mellitus inadequate control [Not Recovered/Not Resolved]
  - Diabetic foot [Recovered/Resolved]
  - Myocardial infarction [Recovered/Resolved]

NARRATIVE: CASE EVENT DATE: 201805
